FAERS Safety Report 12418406 (Version 1)
Quarter: 2016Q2

REPORT INFORMATION
  Report Type: Spontaneous
  Country: RU (occurrence: RU)
  Receive Date: 20160531
  Receipt Date: 20160531
  Transmission Date: 20160815
  Serious: Yes (Death)
  Sender: FDA-Public Use
  Company Number: RU-ASTRAZENECA-2016SE57065

PATIENT
  Age: 70 Year
  Sex: Male

DRUGS (34)
  1. HEPARIN [Concomitant]
     Active Substance: HEPARIN SODIUM
     Indication: ELECTROCARDIOGRAM ST SEGMENT ELEVATION
     Route: 041
     Dates: start: 20160313, end: 20160314
  2. BRILINTA [Suspect]
     Active Substance: TICAGRELOR
     Indication: ELECTROCARDIOGRAM ST SEGMENT ELEVATION
     Dosage: LOADING DOSE OF 180MG DAILY
     Route: 048
     Dates: start: 20160313, end: 20160313
  3. BRILINTA [Suspect]
     Active Substance: TICAGRELOR
     Indication: CARDIAC DISORDER
     Dosage: 90 MG EVERY 12 HOURS
     Route: 048
     Dates: start: 20160313, end: 20160328
  4. BRILINTA [Suspect]
     Active Substance: TICAGRELOR
     Indication: ELECTROCARDIOGRAM ST SEGMENT ELEVATION
     Dosage: 90 MG EVERY 12 HOURS
     Route: 048
     Dates: start: 20160313, end: 20160328
  5. OMEZ [Concomitant]
     Active Substance: OMEPRAZOLE
     Indication: ELECTROCARDIOGRAM ST SEGMENT ELEVATION
     Route: 048
     Dates: start: 20160313, end: 20160328
  6. LASYX [Concomitant]
     Indication: ELECTROCARDIOGRAM ST SEGMENT ELEVATION
     Dosage: 240.0MG UNKNOWN
     Route: 041
     Dates: start: 20160313, end: 20160314
  7. CEFTRIAXONE. [Concomitant]
     Active Substance: CEFTRIAXONE
     Indication: ELECTROCARDIOGRAM ST SEGMENT ELEVATION
     Dosage: 1.0G UNKNOWN
     Route: 040
     Dates: start: 20160313, end: 20160318
  8. LORYSTA [Concomitant]
     Indication: ELECTROCARDIOGRAM ST SEGMENT ELEVATION
     Dosage: 50.0MG UNKNOWN
     Route: 048
     Dates: start: 20160313, end: 20160314
  9. FUROSEMIDE. [Concomitant]
     Active Substance: FUROSEMIDE
     Indication: ELECTROCARDIOGRAM ST SEGMENT ELEVATION
     Route: 048
     Dates: start: 20160313, end: 20160328
  10. ATORVASTATIN [Concomitant]
     Active Substance: ATORVASTATIN
     Indication: CARDIAC DISORDER
     Route: 048
     Dates: start: 20160313, end: 20160328
  11. ATORVASTATIN [Concomitant]
     Active Substance: ATORVASTATIN
     Indication: ELECTROCARDIOGRAM ST SEGMENT ELEVATION
     Route: 048
     Dates: start: 20160313, end: 20160328
  12. FUROSEMIDE. [Concomitant]
     Active Substance: FUROSEMIDE
     Indication: CARDIAC DISORDER
     Route: 048
     Dates: start: 20160313, end: 20160328
  13. CORDARONE [Concomitant]
     Active Substance: AMIODARONE HYDROCHLORIDE
     Indication: CARDIAC DISORDER
     Route: 048
     Dates: start: 20160313, end: 20160328
  14. CORDARONE [Concomitant]
     Active Substance: AMIODARONE HYDROCHLORIDE
     Indication: ELECTROCARDIOGRAM ST SEGMENT ELEVATION
     Route: 048
     Dates: start: 20160313, end: 20160328
  15. CARDIOMAGNYL [Concomitant]
     Active Substance: ASPIRIN\MAGNESIUM HYDROXIDE
     Indication: ELECTROCARDIOGRAM ST SEGMENT ELEVATION
     Dosage: 300.0MG UNKNOWN
     Route: 048
     Dates: start: 20160313, end: 20160313
  16. HEPARIN [Concomitant]
     Active Substance: HEPARIN SODIUM
     Indication: CARDIAC DISORDER
     Route: 041
     Dates: start: 20160313, end: 20160314
  17. DOPAMINE [Concomitant]
     Active Substance: DOPAMINE\DOPAMINE HYDROCHLORIDE
     Indication: ELECTROCARDIOGRAM ST SEGMENT ELEVATION
     Route: 041
     Dates: start: 20160325, end: 20160328
  18. NTT [Concomitant]
     Indication: ELECTROCARDIOGRAM ST SEGMENT ELEVATION
     Dosage: 10.0MG UNKNOWN
     Route: 041
     Dates: start: 20160313, end: 20160314
  19. LIDOCAINE. [Concomitant]
     Active Substance: LIDOCAINE
     Indication: CARDIAC DISORDER
     Dosage: 1200 MG
     Route: 041
     Dates: start: 20160313, end: 20160314
  20. OMEZ [Concomitant]
     Active Substance: OMEPRAZOLE
     Indication: CARDIAC DISORDER
     Route: 048
     Dates: start: 20160313, end: 20160328
  21. LIDOCAINE. [Concomitant]
     Active Substance: LIDOCAINE
     Indication: ELECTROCARDIOGRAM ST SEGMENT ELEVATION
     Dosage: 1200 MG
     Route: 041
     Dates: start: 20160313, end: 20160314
  22. MORPHINE [Concomitant]
     Active Substance: MORPHINE
     Indication: PULMONARY OEDEMA
     Dosage: 1.0ML UNKNOWN
     Route: 040
     Dates: start: 20160313, end: 20160313
  23. CEFTRIAXONE. [Concomitant]
     Active Substance: CEFTRIAXONE
     Indication: ELECTROCARDIOGRAM ST SEGMENT ELEVATION
     Dosage: 2.0G UNKNOWN
     Route: 040
     Dates: start: 20160314, end: 20160322
  24. BRILINTA [Suspect]
     Active Substance: TICAGRELOR
     Indication: CARDIAC DISORDER
     Dosage: LOADING DOSE OF 180MG DAILY
     Route: 048
     Dates: start: 20160313, end: 20160313
  25. CEFTRIAXONE. [Concomitant]
     Active Substance: CEFTRIAXONE
     Indication: CARDIAC DISORDER
     Dosage: 2.0G UNKNOWN
     Route: 040
     Dates: start: 20160314, end: 20160322
  26. CARDIOMAGNYL [Concomitant]
     Active Substance: ASPIRIN\MAGNESIUM HYDROXIDE
     Indication: CARDIAC DISORDER
     Dosage: 300.0MG UNKNOWN
     Route: 048
     Dates: start: 20160313, end: 20160313
  27. LORYSTA [Concomitant]
     Indication: CARDIAC DISORDER
     Dosage: 50.0MG UNKNOWN
     Route: 048
     Dates: start: 20160313, end: 20160314
  28. FENAZEPAM [Concomitant]
     Indication: CARDIAC DISORDER
     Dosage: 1.0MG UNKNOWN
     Route: 048
     Dates: start: 20160313, end: 20160322
  29. DOPAMINE [Concomitant]
     Active Substance: DOPAMINE\DOPAMINE HYDROCHLORIDE
     Indication: CARDIAC DISORDER
     Route: 041
     Dates: start: 20160325, end: 20160328
  30. NTT [Concomitant]
     Indication: CARDIAC DISORDER
     Dosage: 10.0MG UNKNOWN
     Route: 041
     Dates: start: 20160313, end: 20160314
  31. LASYX [Concomitant]
     Indication: CARDIAC DISORDER
     Dosage: 240.0MG UNKNOWN
     Route: 041
     Dates: start: 20160313, end: 20160314
  32. CEFTRIAXONE. [Concomitant]
     Active Substance: CEFTRIAXONE
     Indication: CARDIAC DISORDER
     Dosage: 1.0G UNKNOWN
     Route: 040
     Dates: start: 20160313, end: 20160318
  33. FENAZEPAM [Concomitant]
     Indication: ELECTROCARDIOGRAM ST SEGMENT ELEVATION
     Dosage: 1.0MG UNKNOWN
     Route: 048
     Dates: start: 20160313, end: 20160322
  34. ACTRAPID [Concomitant]
     Active Substance: INSULIN HUMAN
     Indication: TYPE 2 DIABETES MELLITUS
     Dosage: AS NEEDED
     Route: 058
     Dates: start: 20160313, end: 20160323

REACTIONS (3)
  - Acute respiratory failure [Fatal]
  - Haemorrhage [Fatal]
  - Cardiac failure acute [Fatal]

NARRATIVE: CASE EVENT DATE: 20160328
